FAERS Safety Report 10025642 (Version 1)
Quarter: 2014Q1

REPORT INFORMATION
  Report Type: Spontaneous
  Country: US (occurrence: None)
  Receive Date: 20140314
  Receipt Date: 20140314
  Transmission Date: 20141002
  Serious: Yes (Other)
  Sender: FDA-Public Use
  Company Number: AMAG201400052

PATIENT
  Age: 64 Year
  Sex: Male
  Weight: 110.2 kg

DRUGS (18)
  1. FERAHEME [Suspect]
     Indication: IRON DEFICIENCY ANAEMIA
     Dosage: 10 ML (300 MG) SINGLE, INTRAVENOUS
     Route: 042
     Dates: start: 20140305, end: 20140305
  2. FERAHEME [Suspect]
     Indication: NEPHROGENIC ANAEMIA
     Dosage: 10 ML (300 MG) SINGLE, INTRAVENOUS
     Route: 042
     Dates: start: 20140305, end: 20140305
  3. SODIUM BICARBONATE (SODIUM BICARBONATE) [Concomitant]
  4. INSULIN ISOPHANE (INSULIN ISOPHANE BOVINE) [Concomitant]
  5. HYDRALAZINE (HYDRALAZINE) [Concomitant]
  6. LASIX (FUROSEMIDE SODIUM) [Concomitant]
  7. LYRICA (PREGABALIN) [Concomitant]
  8. ERGOCALCIFEROL (ERGOCALCIFEROL) [Concomitant]
  9. COREG (CARVEDILOL) [Concomitant]
  10. NORCO (HYDROCODONE BITARTRATE, PARACETAMOL) [Concomitant]
  11. TRAMADOL (TAMADOL HYDROCHLORIDE) [Concomitant]
  12. CRESTOR (ROSUVASTATIN CALCIUM) [Concomitant]
  13. FERROUS SULFATE (FERROUS SULFATE) [Concomitant]
  14. DOXAZOSIN (DOXAZOSIN MESILATE) [Concomitant]
  15. PLAVIX (CLOPIDOGREL BISULFATE) [Concomitant]
  16. CLONIDINE (CLONIDINE HYDROCHLORIDE) [Concomitant]
  17. ASPIRIN (ACETYLSALICYLIC ACID) [Concomitant]
  18. AMITRIPTYLINE (AMITRIPTYLINE HYDROCHLORIDE) [Concomitant]

REACTIONS (5)
  - Pupil fixed [None]
  - Dizziness [None]
  - Headache [None]
  - Blood glucose increased [None]
  - Hypotension [None]
